FAERS Safety Report 16416860 (Version 1)
Quarter: 2019Q2

REPORT INFORMATION
  Report Type: Spontaneous
  Country: US (occurrence: US)
  Receive Date: 20190503
  Receipt Date: 20190503
  Transmission Date: 20190711
  Serious: No
  Sender: FDA-Public Use
  Company Number: None

PATIENT
  Age: 43 Year
  Sex: Female

DRUGS (1)
  1. HUMIRA [Suspect]
     Active Substance: ADALIMUMAB
     Indication: RHEUMATOID ARTHRITIS
     Dosage: ?          OTHER DOSE:1 PEN;OTHER FREQUENCY:EVERY 2 WEEKS;?
     Route: 058
     Dates: start: 20190228

REACTIONS (2)
  - Hypersensitivity [None]
  - Injection site reaction [None]

NARRATIVE: CASE EVENT DATE: 201904
